FAERS Safety Report 7810513-8 (Version None)
Quarter: 2011Q4

REPORT INFORMATION
  Report Type: 
  Country: None (occurrence: None)
  Receive Date: 20111013
  Receipt Date: 20110928
  Transmission Date: 20120403
  Serious: Yes (Other)
  Sender: FDA-Public Use
  Company Number: IT-ROCHE-1000239

PATIENT

DRUGS (6)
  1. MYCOPHENOLATE MOFETIL (CELLCEPT) [Suspect]
     Indication: NEPHROTIC SYNDROME
  2. MYCOPHENOLATE MOFETIL (CELLCEPT) [Suspect]
     Indication: NEPHROPATHY
  3. MABTHERA [Suspect]
     Indication: NEPHROPATHY
  4. MABTHERA [Suspect]
     Indication: NEPHROTIC SYNDROME
  5. MABTHERA [Suspect]
     Indication: KIDNEY TRANSPLANT REJECTION
  6. MYCOPHENOLATE MOFETIL (CELLCEPT) [Suspect]
     Indication: KIDNEY TRANSPLANT REJECTION

REACTIONS (6)
  - PERITONSILLAR ABSCESS [None]
  - PNEUMOCYSTIS JIROVECI PNEUMONIA [None]
  - STAPHYLOCOCCAL BACTERAEMIA [None]
  - SEPSIS [None]
  - PNEUMONIA BACTERIAL [None]
  - PYELONEPHRITIS [None]
